FAERS Safety Report 7229033-7 (Version None)
Quarter: 2011Q1

REPORT INFORMATION
  Report Type: 
  Country: None (occurrence: None)
  Receive Date: 20110117
  Receipt Date: 20110106
  Transmission Date: 20110831
  Serious: Yes (Other)
  Sender: FDA-Public Use
  Company Number: PHHY2010US83735

PATIENT
  Sex: Female

DRUGS (1)
  1. GILENYA [Suspect]
     Indication: MULTIPLE SCLEROSIS
     Dosage: 0.5 MG, QD
     Route: 048
     Dates: start: 20101207

REACTIONS (5)
  - DIARRHOEA [None]
  - FLATULENCE [None]
  - ABDOMINAL PAIN UPPER [None]
  - HEART RATE DECREASED [None]
  - BOWEL MOVEMENT IRREGULARITY [None]
